FAERS Safety Report 9216278 (Version 1)
Quarter: 2013Q2

REPORT INFORMATION
  Report Type: Spontaneous
  Country: IT (occurrence: None)
  Receive Date: 20130404
  Receipt Date: 20130404
  Transmission Date: 20140414
  Serious: Yes (Hospitalization)
  Sender: FDA-Public Use
  Company Number: 2013-086

PATIENT
  Age: 39 Year
  Sex: Female

DRUGS (4)
  1. CLOZAPINE [Suspect]
     Indication: BIPOLAR I DISORDER
     Route: 048
  2. VALPROIC ACID (VALPROIC ACID) [Concomitant]
  3. LITHIUM [Concomitant]
  4. PIPAMPERONE [Concomitant]

REACTIONS (6)
  - Neuroleptic malignant syndrome [None]
  - Gastrointestinal hypomotility [None]
  - Leukocytosis [None]
  - Abdominal distension [None]
  - Middle insomnia [None]
  - Condition aggravated [None]
